FAERS Safety Report 25226827 (Version 1)
Quarter: 2025Q2

REPORT INFORMATION
  Report Type: Spontaneous
  Country: NL (occurrence: NL)
  Receive Date: 20250422
  Receipt Date: 20250422
  Transmission Date: 20250716
  Serious: Yes (Life-Threatening)
  Sender: MYLAN
  Company Number: None

PATIENT
  Age: 74 Year
  Sex: Female
  Weight: 64.2 kg

DRUGS (12)
  1. METOPROLOL [Suspect]
     Active Substance: METOPROLOL
     Indication: Cardiac failure
     Dosage: 50 MILLIGRAM, QD (1 X PER DAY 1 PIECE)
     Dates: start: 20250324
  2. METOPROLOL [Suspect]
     Active Substance: METOPROLOL
     Dosage: 50 MILLIGRAM, QD (1 X PER DAY 1 PIECE)
     Route: 048
     Dates: start: 20250324
  3. METOPROLOL [Suspect]
     Active Substance: METOPROLOL
     Dosage: 50 MILLIGRAM, QD (1 X PER DAY 1 PIECE)
     Route: 048
     Dates: start: 20250324
  4. METOPROLOL [Suspect]
     Active Substance: METOPROLOL
     Dosage: 50 MILLIGRAM, QD (1 X PER DAY 1 PIECE)
     Dates: start: 20250324
  5. DIGOXIN [Suspect]
     Active Substance: DIGOXIN
     Indication: Cardiac failure
     Dosage: 0.12 MILLIGRAM, QD (1X PER DAY 1 PIECE)
     Dates: start: 20250324
  6. DIGOXIN [Suspect]
     Active Substance: DIGOXIN
     Dosage: 0.12 MILLIGRAM, QD (1X PER DAY 1 PIECE)
     Route: 048
     Dates: start: 20250324
  7. DIGOXIN [Suspect]
     Active Substance: DIGOXIN
     Dosage: 0.12 MILLIGRAM, QD (1X PER DAY 1 PIECE)
     Route: 048
     Dates: start: 20250324
  8. DIGOXIN [Suspect]
     Active Substance: DIGOXIN
     Dosage: 0.12 MILLIGRAM, QD (1X PER DAY 1 PIECE)
     Dates: start: 20250324
  9. SULFAMETHOXAZOLE\TRIMETHOPRIM [Suspect]
     Active Substance: SULFAMETHOXAZOLE\TRIMETHOPRIM
     Indication: Erysipelas
     Dosage: 1 DOSAGE FORM, BID (12 HOURS, 2 X PER DAY 1 PIECE)
     Dates: start: 20250320, end: 20250323
  10. SULFAMETHOXAZOLE\TRIMETHOPRIM [Suspect]
     Active Substance: SULFAMETHOXAZOLE\TRIMETHOPRIM
     Indication: Cellulitis
     Dosage: 1 DOSAGE FORM, BID (12 HOURS, 2 X PER DAY 1 PIECE)
     Route: 048
     Dates: start: 20250320, end: 20250323
  11. SULFAMETHOXAZOLE\TRIMETHOPRIM [Suspect]
     Active Substance: SULFAMETHOXAZOLE\TRIMETHOPRIM
     Dosage: 1 DOSAGE FORM, BID (12 HOURS, 2 X PER DAY 1 PIECE)
     Route: 048
     Dates: start: 20250320, end: 20250323
  12. SULFAMETHOXAZOLE\TRIMETHOPRIM [Suspect]
     Active Substance: SULFAMETHOXAZOLE\TRIMETHOPRIM
     Dosage: 1 DOSAGE FORM, BID (12 HOURS, 2 X PER DAY 1 PIECE)
     Dates: start: 20250320, end: 20250323

REACTIONS (2)
  - Bradycardia [Unknown]
  - Cardiogenic shock [Unknown]
